FAERS Safety Report 9256029 (Version 1)
Quarter: 2013Q2

REPORT INFORMATION
  Report Type: Spontaneous
  Country: CN (occurrence: CN)
  Receive Date: 20130425
  Receipt Date: 20130425
  Transmission Date: 20140414
  Serious: Yes (Other)
  Sender: FDA-Public Use
  Company Number: CN-B.I. PHARMACEUTICALS,INC./RIDGEFIELD-2013-BI-11529YA

PATIENT
  Age: 81 Year
  Sex: Male
  Weight: 59 kg

DRUGS (2)
  1. HARNAL [Suspect]
     Indication: BENIGN PROSTATIC HYPERPLASIA
     Dosage: 0.2 MG
     Route: 048
     Dates: start: 20120720, end: 20121130
  2. CALCIPARINE [Concomitant]
     Dates: start: 20121002

REACTIONS (1)
  - Sputum abnormal [Not Recovered/Not Resolved]
